FAERS Safety Report 5280095-6 (Version None)
Quarter: 2007Q1

REPORT INFORMATION
  Report Type: 
  Country: None (occurrence: None)
  Receive Date: 20070329
  Receipt Date: 20061206
  Transmission Date: 20070707
  Serious: Yes (Death, Hospitalization)
  Sender: FDA-Public Use
  Company Number: US-BAYER-200512212BWH

PATIENT
  Age: 67 Year
  Sex: Male
  Weight: 108 kg

DRUGS (29)
  1. SORAFENIB [Suspect]
     Indication: METASTATIC RENAL CELL CARCINOMA
     Dosage: TOTAL DAILY DOSE: 800 MG  UNIT DOSE: 200 MG
     Route: 048
     Dates: start: 20050811, end: 20051006
  2. SORAFENIB [Suspect]
     Dosage: TOTAL DAILY DOSE: 800 MG  UNIT DOSE: 200 MG
     Route: 048
     Dates: start: 20051019, end: 20051115
  3. ZOFRAN [Concomitant]
     Indication: NAUSEA
     Dosage: TOTAL DAILY DOSE: 32 MG
     Route: 048
     Dates: start: 20050818, end: 20051014
  4. TOPROL-XL [Concomitant]
     Indication: HYPERTENSION
     Route: 048
     Dates: start: 20051014
  5. TOPROL-XL [Concomitant]
     Route: 048
     Dates: start: 20050907, end: 20051014
  6. NORVASC [Concomitant]
     Indication: HYPERTENSION
     Route: 048
     Dates: start: 20050907, end: 20051014
  7. OXYCONTIN [Concomitant]
     Indication: PAIN
     Route: 048
     Dates: start: 20050908
  8. COUMADIN [Concomitant]
     Indication: PULMONARY EMBOLISM
     Route: 048
     Dates: start: 20040401, end: 20051014
  9. COUMADIN [Concomitant]
     Route: 048
     Dates: start: 20051001, end: 20051114
  10. COUMADIN [Concomitant]
     Route: 048
     Dates: start: 20051114
  11. MAGCITRATE [Concomitant]
     Indication: CONSTIPATION
     Route: 048
     Dates: start: 20050908, end: 20050909
  12. DECADRON [Concomitant]
     Indication: BONE PAIN
     Route: 048
     Dates: start: 20050818, end: 20050825
  13. DECADRON [Concomitant]
     Route: 048
     Dates: start: 20050825, end: 20050908
  14. DECADRON [Concomitant]
     Route: 048
     Dates: start: 20050908, end: 20051014
  15. TOPROL-XL [Concomitant]
     Indication: HYPERTENSION
     Route: 048
     Dates: start: 20040101
  16. ASPIRIN [Concomitant]
     Indication: HYPERTENSION
     Dates: start: 20040101, end: 20051014
  17. PERCOCET [Concomitant]
     Indication: PAIN
     Dates: start: 20051014
  18. PHENERGAN HCL [Concomitant]
     Indication: NAUSEA
     Route: 048
     Dates: start: 20051014
  19. DULCOLAX [Concomitant]
     Indication: CONSTIPATION
     Route: 054
     Dates: start: 20051014
  20. MEGACE [Concomitant]
     Indication: DECREASED APPETITE
     Route: 048
     Dates: start: 20051014
  21. CARAFATE [Concomitant]
     Indication: GASTROINTESTINAL ULCER
     Route: 048
     Dates: start: 20051014
  22. PREVACID [Concomitant]
     Indication: GASTROINTESTINAL ULCER
     Route: 048
     Dates: start: 20051014
  23. COLACE [Concomitant]
     Indication: CONSTIPATION
     Route: 048
     Dates: start: 20051014
  24. SPIRONOLACTONE [Concomitant]
     Indication: OEDEMA
     Dosage: AS USED: 25/25 MG
     Route: 048
     Dates: start: 20051014
  25. IRON [Concomitant]
     Indication: ANAEMIA
     Route: 048
     Dates: start: 20051014
  26. LASIX [Concomitant]
     Indication: OEDEMA
     Route: 048
     Dates: start: 20051014
  27. K-DUR 10 [Concomitant]
     Indication: HYPOKALAEMIA
     Route: 048
     Dates: start: 20051014
  28. XALATAN [Concomitant]
     Indication: INTRAOCULAR PRESSURE INCREASED
     Route: 047
     Dates: start: 20051014
  29. COMBIVENT [Concomitant]
     Indication: WHEEZING
     Route: 055
     Dates: start: 20051014

REACTIONS (18)
  - ANAEMIA [None]
  - DUODENAL ULCER [None]
  - DYSPNOEA [None]
  - GASTRITIS [None]
  - GASTROINTESTINAL HAEMORRHAGE [None]
  - GASTROOESOPHAGEAL REFLUX DISEASE [None]
  - HIATUS HERNIA [None]
  - HYPOTENSION [None]
  - INTERNATIONAL NORMALISED RATIO INCREASED [None]
  - MALIGNANT NEOPLASM PROGRESSION [None]
  - METASTASES TO LUNG [None]
  - METASTATIC RENAL CELL CARCINOMA [None]
  - NAUSEA [None]
  - PLEURAL EFFUSION [None]
  - PROTHROMBIN TIME PROLONGED [None]
  - THERAPEUTIC AGENT TOXICITY [None]
  - VOMITING [None]
  - WHEEZING [None]
